FAERS Safety Report 8927096 (Version 1)
Quarter: 2012Q4

REPORT INFORMATION
  Report Type: 
  Country: US (occurrence: US)
  Receive Date: 20121127
  Receipt Date: 20121127
  Transmission Date: 20130627
  Serious: No
  Sender: FDA-Public Use
  Company Number: US-MYLANLABS-2012S1017108

PATIENT
  Sex: Female

DRUGS (2)
  1. MONTELUKAST SODIUM [Suspect]
     Indication: MULTIPLE ALLERGIES
     Route: 048
     Dates: start: 20120811, end: 20120813
  2. MONTELUKAST SODIUM [Suspect]
     Indication: ASTHMA
     Route: 048
     Dates: start: 20120811, end: 20120813

REACTIONS (2)
  - Oropharyngeal pain [Recovering/Resolving]
  - Pharyngeal inflammation [Recovering/Resolving]
